FAERS Safety Report 9280489 (Version 2)
Quarter: 2013Q1

REPORT INFORMATION
  Report Type: Spontaneous
  Country: IE (occurrence: None)
  Receive Date: 20130225
  Receipt Date: 20130315
  Transmission Date: 20140127
  Serious: Yes (Hospitalization, Other)
  Sender: FDA-Public Use
  Company Number: 220563

PATIENT
  Age: 37 Year
  Sex: Female

DRUGS (1)
  1. INNOHEP [Suspect]
     Indication: THROMBOSIS PROPHYLAXIS
     Dosage: WEEK 23 GESTATION TO 6 WEEKS POST PARTUM

REACTIONS (12)
  - Off label use [None]
  - Incorrect drug administration duration [None]
  - Exposure during pregnancy [None]
  - Caesarean section [None]
  - Abdominal pain upper [None]
  - Abdominal tenderness [None]
  - Murphy^s sign positive [None]
  - Omental infarction [None]
  - Epiploic appendagitis [None]
  - Abdominal mass [None]
  - Post procedural complication [None]
  - Abnormal labour [None]
